FAERS Safety Report 7916851-2 (Version None)
Quarter: 2011Q4

REPORT INFORMATION
  Report Type: 
  Country: None (occurrence: None)
  Receive Date: 20111114
  Receipt Date: 20111102
  Transmission Date: 20120403
  Serious: Yes (Disabling)
  Sender: FDA-Public Use
  Company Number: TIF2011A00143

PATIENT
  Age: 81 Year
  Sex: Male

DRUGS (9)
  1. PANTORIC (PANTOPRAZOLE SODIUM) [Concomitant]
  2. ACTOS [Suspect]
     Indication: DRUG INEFFECTIVE
     Dates: start: 20080101, end: 20100101
  3. SIMVASTATIN [Concomitant]
  4. TAREG (VALSARTAN) [Concomitant]
  5. CARDIOASPIRINA (ACETYLSALICYLIC ACID) [Concomitant]
  6. METFORMIN HCL [Concomitant]
  7. ESKIM (OMEGA-3 TRIGLYCERIDES) [Concomitant]
  8. SINGULAIR [Concomitant]
  9. MINITRAN [Concomitant]

REACTIONS (1)
  - BLADDER CANCER [None]
